FAERS Safety Report 13132576 (Version 1)
Quarter: 2017Q1

REPORT INFORMATION
  Report Type: Spontaneous
  Country: US (occurrence: US)
  Receive Date: 20170120
  Receipt Date: 20170120
  Transmission Date: 20170428
  Serious: No
  Sender: FDA-Public Use
  Company Number: US-TEVA-680939USA

PATIENT
  Sex: Female
  Weight: 74.91 kg

DRUGS (2)
  1. GENERIC CALAN-GLENMARK [Suspect]
     Active Substance: VERAPAMIL HYDROCHLORIDE
     Route: 065
  2. GENERIC CALAN [Suspect]
     Active Substance: VERAPAMIL HYDROCHLORIDE
     Route: 065
     Dates: start: 201607

REACTIONS (5)
  - Product substitution issue [Unknown]
  - Dyspnoea [Unknown]
  - Asthenia [Unknown]
  - Nasal congestion [Unknown]
  - Malaise [Unknown]

NARRATIVE: CASE EVENT DATE: 2016
